FAERS Safety Report 7365757-9 (Version None)
Quarter: 2011Q1

REPORT INFORMATION
  Report Type: 
  Country: None (occurrence: None)
  Receive Date: 20110322
  Receipt Date: 20110314
  Transmission Date: 20110831
  Serious: Yes (Other)
  Sender: FDA-Public Use
  Company Number: US-ABBOTT-11P-163-0711959-00

PATIENT
  Age: 27 Year
  Sex: Female

DRUGS (1)
  1. HUMIRA [Suspect]
     Indication: PSORIASIS
     Route: 058
     Dates: start: 20100501, end: 20110314

REACTIONS (5)
  - DISCOMFORT [None]
  - VAGINAL DISCHARGE [None]
  - ABDOMINAL PAIN [None]
  - GYNAECOLOGICAL EXAMINATION ABNORMAL [None]
  - OVARIAN CYST [None]
